FAERS Safety Report 12004945 (Version 2)
Quarter: 2016Q3

REPORT INFORMATION
  Report Type: Spontaneous
  Country: BR (occurrence: BR)
  Receive Date: 20160204
  Receipt Date: 20160720
  Transmission Date: 20161109
  Serious: Yes (Hospitalization, Other)
  Sender: FDA-Public Use
  Company Number: BR-JNJFOC-20160123623

PATIENT
  Age: 78 Year
  Sex: Female
  Weight: 32 kg

DRUGS (1)
  1. SIMPONI [Suspect]
     Active Substance: GOLIMUMAB
     Indication: RHEUMATOID ARTHRITIS
     Route: 058
     Dates: start: 20150112, end: 20150513

REACTIONS (9)
  - Decreased appetite [Unknown]
  - Anger [Unknown]
  - Drug dose omission [Unknown]
  - Pneumonia [Unknown]
  - Osteoarthritis [Unknown]
  - Adverse event [Unknown]
  - Rib fracture [Unknown]
  - Influenza [Unknown]
  - Osteoporosis [Unknown]

NARRATIVE: CASE EVENT DATE: 201506
